FAERS Safety Report 5907844-5 (Version None)
Quarter: 2008Q4

REPORT INFORMATION
  Report Type: 
  Country: None (occurrence: None)
  Receive Date: 20081003
  Receipt Date: 20080924
  Transmission Date: 20090506
  Serious: Yes (Life-Threatening)
  Sender: FDA-Public Use
  Company Number: JP-ROCHE-585894

PATIENT
  Sex: Male
  Weight: 53 kg

DRUGS (13)
  1. PEGASYS [Suspect]
     Indication: HEPATITIS C
     Route: 058
     Dates: start: 20080630, end: 20080721
  2. PEGASYS [Suspect]
     Route: 058
     Dates: start: 20080728
  3. FLUOROURACIL [Suspect]
     Indication: DRUG USE FOR UNKNOWN INDICATION
     Route: 013
     Dates: start: 20080630, end: 20080801
  4. ADALAT [Concomitant]
     Route: 048
  5. AMARYL [Concomitant]
     Route: 048
  6. DIOVAN [Concomitant]
     Route: 048
  7. GASTER D [Concomitant]
     Route: 048
  8. FLUITRAN [Concomitant]
     Route: 048
  9. MIYA BM [Concomitant]
     Route: 048
  10. LIVACT [Concomitant]
     Route: 048
  11. URSO 250 [Concomitant]
     Route: 048
  12. TENORMIN [Concomitant]
     Route: 048
  13. EBRANTIL [Concomitant]
     Route: 048

REACTIONS (4)
  - AGRANULOCYTOSIS [None]
  - PYREXIA [None]
  - RASH [None]
  - RENAL IMPAIRMENT [None]
